FAERS Safety Report 8620055 (Version 3)
Quarter: 2012Q4

REPORT INFORMATION
  Report Type: Report from Study
  Country: US (occurrence: US)
  Receive Date: 20120618
  Receipt Date: 20121016
  Transmission Date: 20130627
  Serious: Yes (Other)
  Sender: FDA-Public Use
  Company Number: US-JNJFOC-20120605019

PATIENT
  Age: 14 Year
  Sex: Male
  Weight: 54.2 kg

DRUGS (11)
  1. REMICADE [Suspect]
     Indication: CROHN^S DISEASE
     Dosage: dose increased to 7.5 mg/kg
     Route: 042
     Dates: start: 20120426
  2. REMICADE [Suspect]
     Indication: CROHN^S DISEASE
     Dosage: dose not specified
     Route: 042
     Dates: start: 20110921
  3. REMICADE [Suspect]
     Indication: CROHN^S DISEASE
     Dosage: increased at week 6
     Route: 042
     Dates: start: 2012
  4. 5-ASA [Concomitant]
  5. CITRACAL W / VITAMIN D [Concomitant]
  6. FERROUS SULFATE [Concomitant]
  7. MULTIVITAMINS [Concomitant]
  8. PROTONIX [Concomitant]
  9. FISH OIL [Concomitant]
  10. ALBUTEROL [Concomitant]
  11. PREDNISONE [Concomitant]

REACTIONS (1)
  - Crohn^s disease [Recovered/Resolved]
